FAERS Safety Report 4683848-8 (Version None)
Quarter: 2005Q2

REPORT INFORMATION
  Report Type: 
  Country: None (occurrence: None)
  Receive Date: 20050602
  Receipt Date: 20050306
  Transmission Date: 20051028
  Serious: No
  Sender: FDA-Public Use
  Company Number: 200510417BWH

PATIENT
  Age: 58 Year
  Sex: Male
  Weight: 99.7913 kg

DRUGS (6)
  1. LEVITRA [Suspect]
     Dosage: 10 MG, TOTAL DAILY, ORAL;  20 MG, TOTAL DAILY, ORAL
     Route: 048
     Dates: start: 20050304
  2. LEVITRA [Suspect]
     Dosage: 10 MG, TOTAL DAILY, ORAL;  20 MG, TOTAL DAILY, ORAL
     Route: 048
     Dates: start: 20050306
  3. LISINOPRIL [Concomitant]
  4. OMEPRAZOLE [Concomitant]
  5. FLOMAX [Concomitant]
  6. GOLDEN FLOWER CHINESE HERBS PROSTATE FORMULA [Concomitant]

REACTIONS (7)
  - DRUG INEFFECTIVE [None]
  - FLUSHING [None]
  - HEADACHE [None]
  - MYALGIA [None]
  - SCROTAL ERYTHEMA [None]
  - TESTICULAR PAIN [None]
  - VASODILATATION [None]
